FAERS Safety Report 7830313-2 (Version None)
Quarter: 2011Q4

REPORT INFORMATION
  Report Type: 
  Country: None (occurrence: None)
  Receive Date: 20111021
  Receipt Date: 20111014
  Transmission Date: 20120403
  Serious: Yes (Other)
  Sender: FDA-Public Use
  Company Number: US-BRISTOL-MYERS SQUIBB COMPANY-16163727

PATIENT
  Sex: Male

DRUGS (1)
  1. YERVOY [Suspect]
     Indication: MALIGNANT MELANOMA
     Dosage: NO OF INF:4, GIVEN INFUSION FOR OVER 1.5 HOURS.
     Dates: start: 20110701

REACTIONS (3)
  - STAPHYLOCOCCAL INFECTION [None]
  - SKIN INFECTION [None]
  - PAIN IN EXTREMITY [None]
